FAERS Safety Report 5676898-6 (Version None)
Quarter: 2008Q1

REPORT INFORMATION
  Report Type: 
  Country: None (occurrence: None)
  Receive Date: 20080318
  Receipt Date: 20080227
  Transmission Date: 20080703
  Serious: Yes (Hospitalization)
  Sender: FDA-Public Use
  Company Number: 2008S1003233

PATIENT
  Age: 65 Year
  Sex: Female

DRUGS (5)
  1. AMIODARONE HCL [Suspect]
     Indication: ATRIAL FIBRILLATION
     Dosage: 200 MG DAILY ORAL
     Route: 048
     Dates: start: 20060601
  2. METOPROLOL TARTRATE [Suspect]
     Indication: VENTRICULAR TACHYCARDIA
     Dosage: 50 MG DAILIY
     Dates: start: 20070401
  3. LOSARTAN POTASSIUM [Concomitant]
  4. HYDROCHLOROTHIAZIDE [Concomitant]
  5. ASPIRIN [Concomitant]

REACTIONS (2)
  - BRUGADA SYNDROME [None]
  - CONDITION AGGRAVATED [None]
